FAERS Safety Report 18137370 (Version 1)
Quarter: 2020Q3

REPORT INFORMATION
  Report Type: Spontaneous
  Country: IE (occurrence: IE)
  Receive Date: 20200812
  Receipt Date: 20200812
  Transmission Date: 20201103
  Serious: Yes (Hospitalization)
  Sender: FDA-Public Use
  Company Number: IE-BAXTER-2020BAX016021

PATIENT
  Age: 45 Year
  Sex: Male

DRUGS (4)
  1. FLUCLOXACILLIN [Suspect]
     Active Substance: FLUCLOXACILLIN
     Indication: PRODUCT USED FOR UNKNOWN INDICATION
     Dosage: CONTINUOUS INFUSION 8G OD
     Route: 042
     Dates: start: 20200804, end: 20200804
  2. WATER FOR INJECTION [Suspect]
     Active Substance: WATER
     Indication: MEDICATION DILUTION
     Dosage: CONTINUOUS INFUSION
     Route: 042
     Dates: start: 20200804, end: 20200804
  3. SODIUM CHLORIDE 0.9% INTRAVENOUS INFUSION BP [Suspect]
     Active Substance: SODIUM CHLORIDE
     Indication: MEDICATION DILUTION
     Dosage: CONTINUOUS INFUSION
     Route: 042
     Dates: start: 20200804, end: 20200804
  4. CITRATE BUFFER [Suspect]
     Active Substance: SODIUM CITRATE
     Indication: MEDICATION DILUTION
     Dosage: PH 6.5?7.5?CONTINUOUS INFUSION
     Route: 042
     Dates: start: 20200804, end: 20200804

REACTIONS (1)
  - Drug eruption [Unknown]

NARRATIVE: CASE EVENT DATE: 20200804
